FAERS Safety Report 24404823 (Version 1)
Quarter: 2024Q4

REPORT INFORMATION
  Report Type: Spontaneous
  Country: CN (occurrence: CN)
  Receive Date: 20241007
  Receipt Date: 20241007
  Transmission Date: 20250115
  Serious: No
  Sender: ROCHE
  Company Number: CN-ROCHE-3537753

PATIENT
  Age: 55 Year
  Sex: Male
  Weight: 89.0 kg

DRUGS (6)
  1. GAZYVA [Suspect]
     Active Substance: OBINUTUZUMAB
     Indication: Non-Hodgkin^s lymphoma
     Route: 041
     Dates: start: 20230830, end: 20230830
  2. CYCLOPHOSPHAMIDE [Concomitant]
     Active Substance: CYCLOPHOSPHAMIDE
     Indication: Non-Hodgkin^s lymphoma
     Dosage: DAY 1 OF THE CYCLE
     Dates: start: 20230829
  3. DOXORUBICIN [Concomitant]
     Active Substance: DOXORUBICIN
     Indication: Non-Hodgkin^s lymphoma
     Dates: start: 20230829
  4. VINCRISTINE [Concomitant]
     Active Substance: VINCRISTINE
     Indication: Non-Hodgkin^s lymphoma
     Dates: start: 20230829
  5. PREDNISONE [Concomitant]
     Active Substance: PREDNISONE
     Indication: Non-Hodgkin^s lymphoma
     Dosage: DAY 1~ DAY 5 OF THE CYCLE
     Dates: start: 20230829
  6. DEXAMETHASONE SODIUM PHOSPHATE [Concomitant]
     Active Substance: DEXAMETHASONE SODIUM PHOSPHATE
     Indication: Antiallergic therapy
     Route: 042
     Dates: start: 20230830

REACTIONS (6)
  - Palpitations [Recovering/Resolving]
  - Chest discomfort [Recovering/Resolving]
  - Dyspnoea [Recovering/Resolving]
  - Vomiting [Recovering/Resolving]
  - Nausea [Recovering/Resolving]
  - Blood glucose increased [Unknown]

NARRATIVE: CASE EVENT DATE: 20230830
